FAERS Safety Report 9286102 (Version 1)
Quarter: 2013Q2

REPORT INFORMATION
  Report Type: Spontaneous
  Country: BR (occurrence: BR)
  Receive Date: 20130513
  Receipt Date: 20130513
  Transmission Date: 20140414
  Serious: Yes (Other)
  Sender: FDA-Public Use
  Company Number: PHHY2013BR046313

PATIENT
  Age: 66 Year
  Sex: Male

DRUGS (2)
  1. APRESOLIN [Suspect]
     Indication: HYPERTENSION
     Dosage: 2 DF, PER DAY (50MG)
     Route: 048
  2. DIOVAN AMLO FIX [Suspect]
     Indication: HYPERTENSION
     Dosage: 1 DF, (VALS 320 MG, AMLO 5 MG) PER DAY
     Route: 048

REACTIONS (1)
  - Cerebrovascular accident [Recovering/Resolving]
